FAERS Safety Report 10254707 (Version 1)
Quarter: 2014Q2

REPORT INFORMATION
  Report Type: Report from Study
  Country: BR (occurrence: BR)
  Receive Date: 20140624
  Receipt Date: 20140624
  Transmission Date: 20141212
  Serious: Yes (Other)
  Sender: FDA-Public Use
  Company Number: BR-BAYER-2014-090927

PATIENT
  Age: 35 Year
  Sex: Female

DRUGS (3)
  1. BETAFERON [Suspect]
     Indication: SECONDARY PROGRESSIVE MULTIPLE SCLEROSIS
     Dosage: 1 ML, QOD
     Route: 058
     Dates: start: 2002
  2. METOTREXATO [Concomitant]
     Dosage: 2.5 MG, QD
     Route: 048
     Dates: start: 2002
  3. BUSPAR [Concomitant]
     Indication: AGITATION
     Dosage: 30 MG, QD
     Route: 048
     Dates: start: 2002

REACTIONS (7)
  - Bedridden [Not Recovered/Not Resolved]
  - Muscle atrophy [Not Recovered/Not Resolved]
  - Speech disorder [Not Recovered/Not Resolved]
  - Paraesthesia oral [Not Recovered/Not Resolved]
  - Agitation [Not Recovered/Not Resolved]
  - Insomnia [Not Recovered/Not Resolved]
  - Drug dose omission [None]
